FAERS Safety Report 9741695 (Version 1)
Quarter: 2013Q4

REPORT INFORMATION
  Report Type: Spontaneous
  Country: US (occurrence: US)
  Receive Date: 20131210
  Receipt Date: 20131210
  Transmission Date: 20140711
  Serious: No
  Sender: FDA-Public Use
  Company Number: US-JNJFOC-20131115947

PATIENT
  Age: 37 Year
  Sex: Male
  Weight: 117.94 kg

DRUGS (4)
  1. DURAGESIC [Suspect]
     Indication: PAIN
     Route: 062
     Dates: start: 2007
  2. DURAGESIC [Suspect]
     Indication: PAIN
     Route: 062
     Dates: start: 201309
  3. MYLAN FENTANYL TRANSDERMAL SYSTEM [Suspect]
     Indication: PAIN
     Route: 062
     Dates: end: 201309
  4. OPIATES [Concomitant]
     Indication: PAIN
     Route: 065
     Dates: start: 2006

REACTIONS (4)
  - Product adhesion issue [Unknown]
  - Hypersomnia [Not Recovered/Not Resolved]
  - Pain [Recovered/Resolved]
  - Treatment noncompliance [Unknown]
